FAERS Safety Report 9927819 (Version 1)
Quarter: 2014Q1

REPORT INFORMATION
  Report Type: Report from Study
  Country: US (occurrence: US)
  Receive Date: 20140227
  Receipt Date: 20140227
  Transmission Date: 20141002
  Serious: Yes (Life-Threatening, Other)
  Sender: FDA-Public Use
  Company Number: US-ROCHE-1354143

PATIENT
  Sex: Male

DRUGS (2)
  1. AVASTIN [Suspect]
     Indication: DIABETIC RETINAL OEDEMA
     Dosage: OU, X 2 INJECTIONS
     Route: 050
  2. LUCENTIS [Suspect]
     Indication: DIABETIC RETINAL OEDEMA
     Dosage: OU
     Route: 050
     Dates: start: 20110705

REACTIONS (10)
  - Prostate cancer metastatic [Unknown]
  - Bone cancer metastatic [Unknown]
  - Cystoid macular oedema [Unknown]
  - Drug ineffective [Unknown]
  - Vitreous detachment [Unknown]
  - Cutis laxa [Unknown]
  - Cataract nuclear [Unknown]
  - Retinal aneurysm [Unknown]
  - Retinal haemorrhage [Unknown]
  - Cataract cortical [Unknown]
